FAERS Safety Report 17475894 (Version 1)
Quarter: 2020Q1

REPORT INFORMATION
  Report Type: Spontaneous
  Country: GB (occurrence: GB)
  Receive Date: 20200228
  Receipt Date: 20200228
  Transmission Date: 20200409
  Serious: Yes (Hospitalization)
  Sender: FDA-Public Use
  Company Number: GB-MYLANLABS-2020M1021091

PATIENT
  Age: 84 Year
  Sex: Male

DRUGS (10)
  1. COCODAMOL [Concomitant]
     Active Substance: ACETAMINOPHEN\CODEINE PHOSPHATE
     Dosage: 8MG/500MG ONCE A DAY
     Route: 048
  2. ATORVASTATIN [Concomitant]
     Active Substance: ATORVASTATIN
     Dosage: AT NIGHT
     Route: 050
  3. RAMIPRIL. [Concomitant]
     Active Substance: RAMIPRIL
     Dosage: IN MORNING
     Route: 048
  4. SALBUTAMOL [Concomitant]
     Active Substance: ALBUTEROL
     Dosage: 1-2 PUFFS QDS
     Route: 055
  5. DICLOFENAC [Concomitant]
     Active Substance: DICLOFENAC
     Dosage: APPLY UP TO TWICE A DAY
     Route: 062
  6. FOSTAIR [Concomitant]
     Active Substance: BECLOMETHASONE\FORMOTEROL
     Dosage: PUFFS 100MCG/DOSE/6MCG/DOSE
     Route: 055
  7. LANSOPRAZOLE. [Concomitant]
     Active Substance: LANSOPRAZOLE
     Dosage: IN MORNING
     Route: 048
  8. ZOPICLONE [Concomitant]
     Active Substance: ZOPICLONE
     Dosage: AT NIGHT
     Route: 048
  9. CLOPIDOGREL [Suspect]
     Active Substance: CLOPIDOGREL BISULFATE
     Indication: PRODUCT USED FOR UNKNOWN INDICATION
     Dosage: 75 MILLIGRAM, QD (IN MORNING)
     Route: 048
     Dates: end: 20191216
  10. TAMSULOSIN [Concomitant]
     Active Substance: TAMSULOSIN
     Dosage: IN MORNING
     Route: 048

REACTIONS (3)
  - Noninfective gingivitis [Recovering/Resolving]
  - Gingival ulceration [Recovering/Resolving]
  - Mouth ulceration [Recovering/Resolving]

NARRATIVE: CASE EVENT DATE: 20190801
